FAERS Safety Report 17097353 (Version 1)
Quarter: 2019Q4

REPORT INFORMATION
  Report Type: Spontaneous
  Country: GB (occurrence: GB)
  Receive Date: 20191202
  Receipt Date: 20191202
  Transmission Date: 20200122
  Serious: Yes (Other)
  Sender: FDA-Public Use
  Company Number: GB-ACCORD-163322

PATIENT
  Sex: Female

DRUGS (2)
  1. ROSUVASTATIN ACCORD [Suspect]
     Active Substance: ROSUVASTATIN
     Indication: PRODUCT USED FOR UNKNOWN INDICATION
     Dosage: STRENGTH: 5 MG
  2. ROSUVASTATIN CRESYA [Suspect]
     Active Substance: ROSUVASTATIN CALCIUM
     Indication: PRODUCT USED FOR UNKNOWN INDICATION
     Dosage: STRENGTH: 5 MG

REACTIONS (2)
  - Product substitution issue [Unknown]
  - Atrial fibrillation [Unknown]
